FAERS Safety Report 8521056-0 (Version None)
Quarter: 2012Q3

REPORT INFORMATION
  Report Type: 
  Country: None (occurrence: None)
  Receive Date: 20120712
  Receipt Date: 20120712
  Transmission Date: 20120928
  Serious: Yes (Other)
  Sender: FDA-Public Use
  Company Number: None

PATIENT
  Age: 19 Year
  Sex: Female
  Weight: 79 kg

DRUGS (2)
  1. METRONIDAZOLE [Suspect]
     Indication: GASTROINTESTINAL INFECTION
     Dosage: 500 MG Q 6 HOURS PO
     Route: 048
     Dates: start: 20120630, end: 20120702
  2. METRONIDAZOLE [Suspect]
     Indication: GASTROINTESTINAL INFECTION
     Dosage: 500 MG Q 6 HOURS IV
     Route: 042
     Dates: start: 20120702, end: 20120705

REACTIONS (1)
  - NEUROPATHY PERIPHERAL [None]
